FAERS Safety Report 20968719 (Version 1)
Quarter: 2022Q2

REPORT INFORMATION
  Report Type: Spontaneous
  Country: JP (occurrence: JP)
  Receive Date: 20220616
  Receipt Date: 20220616
  Transmission Date: 20220721
  Serious: Yes (Other)
  Sender: FDA-Public Use
  Company Number: JP-MSD-M2022-15679

PATIENT
  Age: 53 Year
  Sex: Male

DRUGS (7)
  1. KEYTRUDA [Suspect]
     Active Substance: PEMBROLIZUMAB
     Indication: Renal cell carcinoma stage IV
     Dosage: 200 MILLIGRAM, Q3W
     Route: 041
     Dates: start: 20210610
  2. PREDONINE [Suspect]
     Active Substance: PREDNISOLONE
     Indication: Liver disorder
     Dosage: 60 MILLIGRAM
     Route: 065
     Dates: start: 2021
  3. PREDONINE [Suspect]
     Active Substance: PREDNISOLONE
     Dosage: 30 MILLIGRAM
     Route: 065
     Dates: start: 2021, end: 2021
  4. PREDONINE [Suspect]
     Active Substance: PREDNISOLONE
     Dosage: 20 MILLIGRAM
     Route: 048
     Dates: start: 2021, end: 2021
  5. PREDONINE [Suspect]
     Active Substance: PREDNISOLONE
     Dosage: 15 MILLIGRAM
     Route: 048
     Dates: start: 2021, end: 2021
  6. INLYTA [Concomitant]
     Active Substance: AXITINIB
     Indication: Renal cell carcinoma stage IV
     Dosage: 10 MILLIGRAM, BID
     Route: 048
     Dates: start: 20210531
  7. INLYTA [Concomitant]
     Active Substance: AXITINIB
     Dosage: 5 MILLIGRAM/DAY
     Route: 048
     Dates: start: 20210909

REACTIONS (4)
  - Erythema multiforme [Recovering/Resolving]
  - Liver disorder [Recovering/Resolving]
  - Diarrhoea [Unknown]
  - Hyperglycaemia [Recovered/Resolved]

NARRATIVE: CASE EVENT DATE: 20210721
